FAERS Safety Report 5781828-2 (Version None)
Quarter: 2008Q2

REPORT INFORMATION
  Report Type: 
  Country: None (occurrence: None)
  Receive Date: 20080623
  Receipt Date: 20080618
  Transmission Date: 20081010
  Serious: Yes (Hospitalization)
  Sender: FDA-Public Use
  Company Number: IT-AVENTIS-200812981EU

PATIENT
  Age: 63 Year
  Sex: Female

DRUGS (8)
  1. CLEXANE [Suspect]
     Route: 058
     Dates: start: 20080225, end: 20080225
  2. EFEXOR                             /01233802/ [Concomitant]
     Indication: DEPRESSION
  3. ESAPENT [Concomitant]
  4. GLUCOPHAGE [Concomitant]
     Indication: DIABETES MELLITUS
  5. IRBESARTAN [Concomitant]
     Indication: ESSENTIAL HYPERTENSION
  6. DICLOREUM [Concomitant]
  7. TOTALIP [Concomitant]
  8. ASPIRIN [Concomitant]

REACTIONS (2)
  - HYPERTENSIVE CRISIS [None]
  - MALAISE [None]
